FAERS Safety Report 9228129 (Version 2)
Quarter: 2013Q2

REPORT INFORMATION
  Report Type: Spontaneous
  Country: GB (occurrence: GB)
  Receive Date: 20130412
  Receipt Date: 20130522
  Transmission Date: 20140414
  Serious: Yes (Other)
  Sender: FDA-Public Use
  Company Number: GB-ROCHE-1210574

PATIENT
  Age: 43 Year
  Sex: Male

DRUGS (2)
  1. T-PA [Suspect]
     Indication: PERIPHERAL ARTERY THROMBOSIS
     Route: 065
  2. HEPARIN [Suspect]
     Indication: PRODUCT USED FOR UNKNOWN INDICATION
     Route: 065

REACTIONS (3)
  - Drug effect decreased [Unknown]
  - Finger amputation [Unknown]
  - Extremity necrosis [Unknown]
